FAERS Safety Report 8286308-0 (Version None)
Quarter: 2012Q2

REPORT INFORMATION
  Report Type: 
  Country: None (occurrence: None)
  Receive Date: 20120416
  Receipt Date: 20120410
  Transmission Date: 20120825
  Serious: No
  Sender: FDA-Public Use
  Company Number: US-PFIZER INC-2012037107

PATIENT
  Sex: Female
  Weight: 62 kg

DRUGS (8)
  1. GABAPENTIN [Suspect]
     Indication: FIBROMYALGIA
     Dosage: 600 MG, DAILY
  2. SPIRIVA [Concomitant]
     Indication: CHRONIC OBSTRUCTIVE PULMONARY DISEASE
     Dosage: UNK
  3. AMITRIPTYLINE [Concomitant]
     Indication: DEPRESSION
     Dosage: 20 MG, DAILY
  4. TRAZODONE [Concomitant]
     Indication: DEPRESSION
     Dosage: 50 MG IN THE MORNING AND 150 MG AT NIGHT
  5. GABAPENTIN [Suspect]
     Indication: NEURALGIA
  6. GABAPENTIN [Suspect]
     Indication: MYALGIA
  7. ATENOLOL [Concomitant]
     Indication: HYPERTENSION
     Dosage: 25 MG, DAILY
  8. VASOTEC [Concomitant]
     Indication: HYPERTENSION
     Dosage: 20 MG, DAILY

REACTIONS (1)
  - CHEST PAIN [None]
